FAERS Safety Report 4351521-1 (Version None)
Quarter: 2004Q2

REPORT INFORMATION
  Report Type: 
  Country: None (occurrence: None)
  Receive Date: 20040430
  Receipt Date: 20040430
  Transmission Date: 20050107
  Serious: Yes (Other)
  Sender: FDA-Public Use
  Company Number: None

PATIENT
  Age: 24 Year
  Sex: Female
  Weight: 131.5431 kg

DRUGS (3)
  1. IBUPROFEN [Suspect]
     Indication: PAIN
     Dosage: 600 MG PO Q4 HR PRN
     Route: 048
  2. VISTARIL [Suspect]
     Indication: ANXIETY
     Dosage: 50 MG PO Q4H RON
     Route: 048
  3. TRAZODONE HCL [Suspect]
     Indication: INSOMNIA
     Dosage: 50 MG PO QHS PRN
     Route: 048

REACTIONS (4)
  - DYSPNOEA [None]
  - RASH GENERALISED [None]
  - THROAT TIGHTNESS [None]
  - URTICARIA GENERALISED [None]
